FAERS Safety Report 8079154-4 (Version None)
Quarter: 2012Q1

REPORT INFORMATION
  Report Type: 
  Country: None (occurrence: None)
  Receive Date: 20120128
  Receipt Date: 20110801
  Transmission Date: 20120608
  Serious: No
  Sender: FDA-Public Use
  Company Number: US-ABBOTT-11P-163-0843181-00

PATIENT
  Age: 63 Year
  Sex: Female

DRUGS (17)
  1. BONIVA [Concomitant]
     Indication: OSTEOPOROSIS
     Dosage: MONTHLY
  2. LIDODERM [Concomitant]
     Indication: BACK PAIN
  3. HYDROCODONE BITARTRATE [Concomitant]
     Indication: HEADACHE
  4. MOBIC [Concomitant]
     Indication: BONE PAIN
  5. XYZAL [Concomitant]
     Indication: PRURITUS
  6. FOLIC ACID [Concomitant]
     Indication: PRODUCT USED FOR UNKNOWN INDICATION
  7. LYRICA [Concomitant]
     Indication: FIBROMYALGIA
  8. SOMA COMPOUND [Concomitant]
     Indication: MUSCLE RELAXANT THERAPY
     Dosage: ONE TO THREE TIMES A DAY
  9. TOPAMAX [Concomitant]
     Indication: MUSCLE SPASMS
  10. ALPRAZOLAM [Concomitant]
     Indication: INSOMNIA
     Dosage: AT BEDTIME
  11. HYDROCODONE BITARTRATE [Concomitant]
     Indication: BACK PAIN
  12. MIGRANAL [Concomitant]
     Indication: MIGRAINE
  13. NEXIUM [Concomitant]
     Indication: PROPHYLAXIS AGAINST GASTROINTESTINAL ULCER
  14. HUMIRA [Suspect]
     Indication: CROHN'S DISEASE
  15. PROMETHAZINE [Concomitant]
     Indication: NAUSEA
  16. HYDROCODONE BITARTRATE [Concomitant]
     Indication: ABDOMINAL PAIN
  17. AMITRIPTYLINE HCL [Concomitant]
     Indication: INSOMNIA

REACTIONS (1)
  - INJECTION SITE PAIN [None]
